FAERS Safety Report 7227521-0 (Version None)
Quarter: 2011Q1

REPORT INFORMATION
  Report Type: 
  Country: None (occurrence: None)
  Receive Date: 20110114
  Receipt Date: 20100913
  Transmission Date: 20110831
  Serious: Yes (Hospitalization)
  Sender: FDA-Public Use
  Company Number: PHHO2010BE12459

PATIENT
  Sex: Male
  Weight: 94.3 kg

DRUGS (19)
  1. NEORAL [Suspect]
     Indication: RENAL TRANSPLANT
  2. MEDROL [Suspect]
     Dosage: 4 MG, TID
     Route: 048
     Dates: start: 20100709
  3. PROGRAF [Concomitant]
  4. NO TREATMENT RECEIVED [Suspect]
     Indication: RENAL TRANSPLANT
     Dosage: NO TREATMENT
  5. D-CURE [Concomitant]
  6. ARANESP [Concomitant]
  7. PANTOPRAZOLE [Concomitant]
  8. VALCYTE [Concomitant]
  9. FLUDEX [Concomitant]
  10. CELLCEPT [Suspect]
     Dosage: 2X1000 MG
     Route: 048
     Dates: start: 20100621
  11. BACTRIM DS [Concomitant]
  12. BUMEX [Concomitant]
  13. CALCIUM CARBONATE [Concomitant]
  14. MAREVAN [Concomitant]
  15. ALFACALCIDOL [Concomitant]
  16. FRAXODI [Concomitant]
  17. MAGNUM [Concomitant]
  18. SODIUM BICARBONATE [Concomitant]
  19. MOTILIUM [Concomitant]

REACTIONS (5)
  - NERVOUS SYSTEM DISORDER [None]
  - NEUROLOGICAL SYMPTOM [None]
  - BLOOD CREATININE INCREASED [None]
  - HYPONATRAEMIA [None]
  - HEADACHE [None]
